FAERS Safety Report 6001155-8 (Version None)
Quarter: 2008Q4

REPORT INFORMATION
  Report Type: 
  Country: None (occurrence: None)
  Receive Date: 20081215
  Receipt Date: 20071121
  Transmission Date: 20090506
  Serious: No
  Sender: FDA-Public Use
  Company Number: US-AMGEN-KDL250286

PATIENT
  Sex: Female

DRUGS (3)
  1. ENBREL [Suspect]
     Indication: RHEUMATOID ARTHRITIS
     Route: 058
     Dates: start: 20070430
  2. SULFASALAZINE [Concomitant]
  3. ASPIRIN [Concomitant]
     Route: 048

REACTIONS (8)
  - ANAEMIA [None]
  - ARTHRALGIA [None]
  - BRONCHITIS [None]
  - BURNING SENSATION [None]
  - COLONIC POLYP [None]
  - HYPOAESTHESIA [None]
  - PARAESTHESIA [None]
  - SINUS CONGESTION [None]
